FAERS Safety Report 10713089 (Version 1)
Quarter: 2015Q1

REPORT INFORMATION
  Report Type: Spontaneous
  Country: US (occurrence: US)
  Receive Date: 20150115
  Receipt Date: 20150115
  Transmission Date: 20150721
  Serious: No
  Sender: FDA-Public Use
  Company Number: US-MYLANLABS-2014M1008599

PATIENT
  Age: 70 Year
  Sex: Female
  Weight: 54.42 kg

DRUGS (1)
  1. MECLOZINE [Suspect]
     Active Substance: MECLIZINE\MECLIZINE HYDROCHLORIDE
     Indication: MOTION SICKNESS
     Dosage: UNK, PRN
     Route: 048
     Dates: end: 20141015

REACTIONS (2)
  - Rash generalised [Not Recovered/Not Resolved]
  - Expired product administered [Recovered/Resolved]

NARRATIVE: CASE EVENT DATE: 20141015
